FAERS Safety Report 12134368 (Version 1)
Quarter: 2016Q1

REPORT INFORMATION
  Report Type: Spontaneous
  Country: US (occurrence: US)
  Receive Date: 20160301
  Receipt Date: 20160301
  Transmission Date: 20160526
  Serious: No
  Sender: FDA-Public Use
  Company Number: US-TURING PHARMACEUTICALS-2016TNG00002

PATIENT
  Age: 59 Year
  Sex: Female
  Weight: 54.42 kg

DRUGS (8)
  1. UNSPECIFIED ^PSYCHOSIS PILL^ [Concomitant]
  2. ALEVE [Concomitant]
     Active Substance: NAPROXEN SODIUM
     Dosage: 1 DOSAGE UNITS, 2X/DAY
  3. DARAPRIM [Suspect]
     Active Substance: PYRIMETHAMINE
     Indication: EYE INFECTION TOXOPLASMAL
     Dosage: 3 TABLETS, 1X/DAY
     Route: 048
     Dates: start: 20151130, end: 201601
  4. DARAPRIM [Suspect]
     Active Substance: PYRIMETHAMINE
     Dosage: UNK
     Dates: start: 201601, end: 201601
  5. DARAPRIM [Suspect]
     Active Substance: PYRIMETHAMINE
     Dosage: 50 MG, IN THE MORNING
     Dates: start: 201601
  6. DARAPRIM [Suspect]
     Active Substance: PYRIMETHAMINE
     Dosage: 25 MG, IN THE EVENING
  7. OXYCODONE [Concomitant]
     Active Substance: OXYCODONE
  8. LISINOPRIL. [Concomitant]
     Active Substance: LISINOPRIL

REACTIONS (8)
  - Muscle twitching [Not Recovered/Not Resolved]
  - Restlessness [Not Recovered/Not Resolved]
  - Insomnia [Not Recovered/Not Resolved]
  - Sensation of foreign body [Not Recovered/Not Resolved]
  - Headache [Not Recovered/Not Resolved]
  - Tremor [Not Recovered/Not Resolved]
  - Discomfort [Not Recovered/Not Resolved]
  - Blindness unilateral [None]

NARRATIVE: CASE EVENT DATE: 201511
